FAERS Safety Report 5904276-0 (Version None)
Quarter: 2008Q3

REPORT INFORMATION
  Report Type: 
  Country: None (occurrence: None)
  Receive Date: 20080930
  Receipt Date: 20080930
  Transmission Date: 20090109
  Serious: Yes (Hospitalization)
  Sender: FDA-Public Use
  Company Number: None

PATIENT
  Age: 44 Year
  Sex: Male
  Weight: 58.0604 kg

DRUGS (1)
  1. KEFLEX [Suspect]
     Indication: CELLULITIS
     Dosage: 1 PILL EVERY 12 HOURS EVERY 12 HOURS PO
     Route: 048
     Dates: start: 20080925, end: 20080926

REACTIONS (2)
  - MIGRAINE [None]
  - SLEEP DISORDER [None]
